FAERS Safety Report 4441160-6 (Version None)
Quarter: 2004Q3

REPORT INFORMATION
  Report Type: 
  Country: None (occurrence: None)
  Receive Date: 20040728
  Receipt Date: 20040324
  Transmission Date: 20050211
  Serious: No
  Sender: FDA-Public Use
  Company Number: USA040363083

PATIENT
  Age: 8 Year
  Sex: Male

DRUGS (3)
  1. STRATTERA [Suspect]
     Dosage: 18 MG IN THE MORNING
     Dates: start: 20040322
  2. PULMICORT [Concomitant]
  3. ALBUTEROL [Concomitant]

REACTIONS (3)
  - NIGHTMARE [None]
  - PSYCHOMOTOR HYPERACTIVITY [None]
  - SOMNOLENCE [None]
